FAERS Safety Report 24174930 (Version 4)
Quarter: 2025Q1

REPORT INFORMATION
  Report Type: Spontaneous
  Country: CL (occurrence: CL)
  Receive Date: 20240805
  Receipt Date: 20250221
  Transmission Date: 20250409
  Serious: No
  Sender: PFIZER
  Company Number: CL-PFIZER INC-202400224595

PATIENT
  Sex: Male

DRUGS (1)
  1. GENOTROPIN [Suspect]
     Active Substance: SOMATROPIN

REACTIONS (1)
  - Device delivery system issue [Unknown]

NARRATIVE: CASE EVENT DATE: 20240723
